FAERS Safety Report 4732760-4 (Version None)
Quarter: 2005Q3

REPORT INFORMATION
  Report Type: 
  Country: None (occurrence: None)
  Receive Date: 20050803
  Receipt Date: 20050527
  Transmission Date: 20060218
  Serious: Yes (Hospitalization)
  Sender: FDA-Public Use
  Company Number: FR-GLAXOSMITHKLINE-B0382811A

PATIENT
  Age: 87 Year
  Sex: Male

DRUGS (2)
  1. ZINNAT [Suspect]
     Indication: RESPIRATORY DISORDER
     Dosage: 250MG TWICE PER DAY
     Route: 048
     Dates: start: 20050503, end: 20050505
  2. PREVISCAN [Suspect]
     Dosage: 10MG PER DAY
     Route: 048
     Dates: end: 20050505

REACTIONS (12)
  - ANAEMIA [None]
  - BEDRIDDEN [None]
  - CARDIAC FAILURE [None]
  - CARDIOMYOPATHY [None]
  - DEMENTIA [None]
  - DISABILITY [None]
  - DRUG INTERACTION [None]
  - GASTROINTESTINAL HAEMORRHAGE [None]
  - MELAENA [None]
  - MYOCARDIAL INFARCTION [None]
  - PHARYNGEAL HAEMORRHAGE [None]
  - PROTHROMBIN TIME RATIO ABNORMAL [None]
